FAERS Safety Report 12324098 (Version 4)
Quarter: 2025Q1

REPORT INFORMATION
  Report Type: Spontaneous
  Country: US (occurrence: US)
  Receive Date: 20160502
  Receipt Date: 20250217
  Transmission Date: 20250408
  Serious: Yes (Hospitalization, Other)
  Sender: BRISTOL-MYERS SQUIBB COMPANY
  Company Number: US-BRISTOL-MYERS SQUIBB COMPANY-BMS-2016-031632

PATIENT
  Age: 76 Year
  Sex: Female

DRUGS (19)
  1. SPRYCEL [Suspect]
     Active Substance: DASATINIB
     Indication: Chronic myeloid leukaemia
     Dosage: 100 MG, QD
     Route: 048
  2. BOSULIF [Suspect]
     Active Substance: BOSUTINIB MONOHYDRATE
     Indication: Chronic myeloid leukaemia
     Dosage: 500 MG, UNK TAKE 1 TABLET BY MOUTH EVERY 48 HOURS
     Route: 048
  3. NORVASC [Suspect]
     Active Substance: AMLODIPINE BESYLATE
     Indication: Product used for unknown indication
  4. ZOLOFT [Suspect]
     Active Substance: SERTRALINE HYDROCHLORIDE
     Indication: Product used for unknown indication
     Dosage: 0.45 MG, QD
     Route: 048
  5. ZOLOFT [Suspect]
     Active Substance: SERTRALINE HYDROCHLORIDE
     Route: 048
  6. CENTRUM [ASCORBIC ACID;BIOTIN;CALCIUM;CALCIUM PANTOTHENATE;COLECALCIFE [Concomitant]
     Indication: Product used for unknown indication
  7. PREMARIN [Concomitant]
     Active Substance: ESTROGENS, CONJUGATED
     Indication: Product used for unknown indication
  8. SIMVASTATIN [Concomitant]
     Active Substance: SIMVASTATIN
     Indication: Product used for unknown indication
     Route: 048
  9. METFORMIN [Concomitant]
     Active Substance: METFORMIN HYDROCHLORIDE
     Indication: Product used for unknown indication
  10. AMLODIPINE [Concomitant]
     Active Substance: AMLODIPINE BESYLATE
     Indication: Product used for unknown indication
     Route: 048
  11. ASPIRIN [Concomitant]
     Active Substance: ASPIRIN
     Indication: Product used for unknown indication
  12. FARXIGA [Concomitant]
     Active Substance: DAPAGLIFLOZIN PROPANEDIOL
     Indication: Product used for unknown indication
  13. CALCIUM CARBONATE\VITAMIN D [Concomitant]
     Active Substance: CALCIUM CARBONATE\VITAMIN D
     Indication: Product used for unknown indication
     Dosage: 2 TAB 1 TAB 1 TAB, BID
     Route: 048
  14. DAPAGLIFLOZIN [Concomitant]
     Active Substance: DAPAGLIFLOZIN
     Indication: Product used for unknown indication
     Route: 048
  15. ASPIRIN [Concomitant]
     Active Substance: ASPIRIN
     Indication: Product used for unknown indication
     Dosage: 81 MG, QD
     Route: 048
  16. BOSUTINIB [Concomitant]
     Active Substance: BOSUTINIB
     Indication: Product used for unknown indication
     Dosage: 1 TAB 1 TAB 1 TAB, QD
     Route: 048
  17. FOLIC ACID [Concomitant]
     Active Substance: FOLIC ACID
     Indication: Product used for unknown indication
     Dosage: UNK UNK, QD
     Route: 048
  18. FLUOROMETHOLONE ACETATE [Concomitant]
     Active Substance: FLUOROMETHOLONE ACETATE
     Indication: Product used for unknown indication
     Dosage: QQD
  19. NASONEX [Concomitant]
     Active Substance: MOMETASONE FUROATE
     Indication: Product used for unknown indication
     Dosage: UNK, QD
     Route: 045

REACTIONS (9)
  - Pleural effusion [Unknown]
  - Arterial disorder [Unknown]
  - Pyrexia [Unknown]
  - Sneezing [Unknown]
  - Fatigue [Unknown]
  - General physical health deterioration [Unknown]
  - Neck pain [Unknown]
  - Pulmonary hypertension [Unknown]
  - Angioedema [Unknown]
